FAERS Safety Report 5485880-3 (Version None)
Quarter: 2007Q4

REPORT INFORMATION
  Report Type: 
  Country: None (occurrence: None)
  Receive Date: 20071001
  Receipt Date: 20070725
  Transmission Date: 20080405
  Serious: Yes (Hospitalization)
  Sender: FDA-Public Use
  Company Number: TPA2007A01540

PATIENT
  Age: 75 Year
  Sex: Female
  Weight: 88.4514 kg

DRUGS (9)
  1. ACTOS [Suspect]
     Indication: TYPE 2 DIABETES MELLITUS
     Dosage: 30 MG, 1 IN 1 D, PER ORAL
     Route: 048
     Dates: start: 20070501, end: 20070709
  2. FUROSEMIDE [Concomitant]
  3. DILTIAZEM [Concomitant]
  4. LABETALOL HCL [Concomitant]
  5. QUINAPRIL HCL [Concomitant]
  6. SPIRONOLACTONE [Concomitant]
  7. METFORMIN HCL [Concomitant]
  8. LYRICA [Concomitant]
  9. ATACAND [Concomitant]

REACTIONS (4)
  - CARDIAC FAILURE CONGESTIVE [None]
  - DYSPNOEA [None]
  - OEDEMA PERIPHERAL [None]
  - WEIGHT INCREASED [None]
